FAERS Safety Report 5341030-5 (Version None)
Quarter: 2007Q2

REPORT INFORMATION
  Report Type: 
  Country: None (occurrence: None)
  Receive Date: 20070405
  Receipt Date: 20070125
  Transmission Date: 20071010
  Serious: No
  Sender: FDA-Public Use
  Company Number: US200701005317

PATIENT
  Age: 66 Year
  Sex: Female

DRUGS (12)
  1. ZYPREXA [Suspect]
     Indication: DEPRESSION
     Dosage: 5 MG, ORAL
     Route: 048
     Dates: start: 20050101, end: 20070110
  2. CYMBALTA [Suspect]
     Indication: DEPRESSION
     Dosage: 60 MG, EACH MORNING,
     Dates: start: 20070113
  3. SANCTURA [Concomitant]
  4. LOVASTATIN [Concomitant]
  5. AMBIEN [Concomitant]
  6. MIRALAX [Concomitant]
  7. CLONIDINE [Concomitant]
  8. OMEPRAZOLE [Concomitant]
  9. METHADONE HCL [Concomitant]
  10. LORAZEPAM [Concomitant]
  11. SPIRONOLACTONE [Concomitant]
  12. TRAZODIL (TRAZODONE HYDROCHLORIDE) [Concomitant]

REACTIONS (4)
  - CRYING [None]
  - DRUG INEFFECTIVE [None]
  - MOANING [None]
  - NAUSEA [None]
